FAERS Safety Report 13045106 (Version 1)
Quarter: 2016Q4

REPORT INFORMATION
  Report Type: Spontaneous
  Country: US (occurrence: US)
  Receive Date: 20161220
  Receipt Date: 20161220
  Transmission Date: 20170207
  Serious: No
  Sender: FDA-Public Use
  Company Number: US-ASTRAZENECA-2016SF29543

PATIENT
  Age: 62 Year
  Sex: Female
  Weight: 52.2 kg

DRUGS (4)
  1. NEXIUM [Suspect]
     Active Substance: ESOMEPRAZOLE MAGNESIUM
     Indication: BARRETT^S OESOPHAGUS
     Route: 048
     Dates: start: 2006
  2. NEXIUM [Suspect]
     Active Substance: ESOMEPRAZOLE MAGNESIUM
     Indication: BARRETT^S OESOPHAGUS
     Dosage: 40 MG TWO TIMES A DAY (ESOMEPRAZOLE MAGNESIUM)
     Route: 048
     Dates: start: 201606
  3. NEXIUM [Suspect]
     Active Substance: ESOMEPRAZOLE MAGNESIUM
     Indication: BARRETT^S OESOPHAGUS
     Route: 048
  4. NEXIUM [Suspect]
     Active Substance: ESOMEPRAZOLE MAGNESIUM
     Indication: BARRETT^S OESOPHAGUS
     Dosage: 40 MG TWO TIMES A DAY (ESOMEPRAZOLE MAGNESIUM)
     Route: 048

REACTIONS (4)
  - Off label use [Unknown]
  - Product use issue [Unknown]
  - Drug dose omission [Unknown]
  - Oesophageal pain [Unknown]

NARRATIVE: CASE EVENT DATE: 2006
